FAERS Safety Report 6582634-1 (Version None)
Quarter: 2010Q1

REPORT INFORMATION
  Report Type: 
  Country: None (occurrence: None)
  Receive Date: 20100216
  Receipt Date: 20100204
  Transmission Date: 20100710
  Serious: Yes (Other)
  Sender: FDA-Public Use
  Company Number: US-ELI_LILLY_AND_COMPANY-US201002002493

PATIENT
  Sex: Female

DRUGS (3)
  1. CYMBALTA [Suspect]
     Indication: FIBROMYALGIA
     Dosage: 20 MG, DAILY (1/D)
     Route: 065
  2. CYMBALTA [Suspect]
     Dosage: 20 MG, DAILY (1/D)
     Route: 065
     Dates: start: 20100203
  3. PLAVIX [Concomitant]
     Dosage: 75 MG, UNKNOWN
     Route: 065

REACTIONS (1)
  - HAEMOGLOBIN ABNORMAL [None]
